FAERS Safety Report 6772993-9 (Version None)
Quarter: 2010Q2

REPORT INFORMATION
  Report Type: 
  Country: None (occurrence: None)
  Receive Date: 20100616
  Receipt Date: 20100604
  Transmission Date: 20101027
  Serious: Yes (Life-Threatening, Hospitalization, Other)
  Sender: FDA-Public Use
  Company Number: JP-PFIZER INC-2009264271

PATIENT
  Age: 51 Year
  Sex: Male

DRUGS (6)
  1. SUNITINIB MALATE [Suspect]
     Indication: RENAL CELL CARCINOMA
     Dosage: 50 MG, 1X/DAY
     Route: 048
     Dates: start: 20090722, end: 20090729
  2. SUNITINIB MALATE [Suspect]
     Dosage: 50 MG, 1X/DAY
     Route: 048
     Dates: start: 20090813, end: 20090909
  3. SUNITINIB MALATE [Suspect]
     Dosage: 37.5 MG, 1X/DAY
     Route: 048
     Dates: start: 20091128, end: 20091218
  4. SUNITINIB MALATE [Suspect]
     Dosage: 25 MG, 1X/DAY
     Route: 048
     Dates: start: 20100114, end: 20100210
  5. VOLTAREN [Concomitant]
     Dosage: UNK
     Dates: end: 20090726
  6. CYTOTEC [Concomitant]
     Dosage: UNK
     Dates: end: 20090726

REACTIONS (3)
  - ANAL ABSCESS [None]
  - NEUTROPENIA [None]
  - PULMONARY EMBOLISM [None]
